FAERS Safety Report 10236082 (Version 1)
Quarter: 2014Q1

REPORT INFORMATION
  Report Type: Spontaneous
  Country: US (occurrence: None)
  Receive Date: 20140306
  Receipt Date: 20140306
  Transmission Date: 20141002
  Serious: Yes (Hospitalization)
  Sender: FDA-Public Use
  Company Number: 163-21880-13103205

PATIENT
  Age: 73 Year
  Sex: Male

DRUGS (6)
  1. REVLIMID (LENALIDOMIDE) (25 MILLIGRAM) [Suspect]
     Indication: PLASMA CELL MYELOMA
     Dosage: 25 MG, 21 IN 28 D, PO?05/03/2013 - TEMPORARILY INTTERRUPTED
     Route: 048
     Dates: start: 20130513
  2. DEXAMETHASONE (DEXAMETHASONE) [Concomitant]
  3. COMPAZINE (PROCHLORPERAZINE EDISYLATE) [Concomitant]
  4. ZOMETA (ZOLEDRONIC ACID) [Concomitant]
  5. ALBUTEROL (SALBUTAMOL) [Concomitant]
  6. FLUTICASONE (FLUTICASONE) [Concomitant]

REACTIONS (2)
  - Pneumonia [None]
  - Local swelling [None]
